FAERS Safety Report 5421418-4 (Version None)
Quarter: 2007Q3

REPORT INFORMATION
  Report Type: 
  Country: None (occurrence: None)
  Receive Date: 20070821
  Receipt Date: 20070816
  Transmission Date: 20080115
  Serious: Yes (Other)
  Sender: FDA-Public Use
  Company Number: DK-BOEHRINGER INGELHEIM PHARMACEUTICALS, INC.-2007-SW-00309DB

PATIENT
  Sex: Male
  Weight: 96 kg

DRUGS (3)
  1. SIFROL TAB. 0.18 MG [Suspect]
     Indication: MUSCLE SPASMS
     Route: 048
     Dates: start: 20060831
  2. SIFROL TAB. 0.18 MG [Suspect]
     Route: 048
  3. SIFROL TAB. 0.18 MG [Suspect]
     Route: 048
     Dates: end: 20060930

REACTIONS (7)
  - DYSARTHRIA [None]
  - LISTLESS [None]
  - NIGHTMARE [None]
  - PIGMENTATION DISORDER [None]
  - PSORIASIS [None]
  - SLEEP TALKING [None]
  - WEIGHT INCREASED [None]
